FAERS Safety Report 7701069-9 (Version None)
Quarter: 2011Q3

REPORT INFORMATION
  Report Type: 
  Country: None (occurrence: None)
  Receive Date: 20110817
  Receipt Date: 20110809
  Transmission Date: 20111222
  Serious: Yes (Death)
  Sender: FDA-Public Use
  Company Number: JPI-P-014786

PATIENT
  Age: 57 Year
  Sex: Male

DRUGS (3)
  1. XYREM [Suspect]
     Indication: PRODUCT USED FOR UNKNOWN INDICATION
     Dosage: 4.5,6,9 GM (2.25 GM, 2 IN 1 D), ORAL
     Route: 048
     Dates: start: 20030804, end: 20040113
  2. XYREM [Suspect]
     Indication: PRODUCT USED FOR UNKNOWN INDICATION
     Dosage: 4.5,6,9 GM (2.25 GM, 2 IN 1 D), ORAL
     Route: 048
     Dates: start: 20030702, end: 20030101
  3. XYREM [Suspect]
     Indication: PRODUCT USED FOR UNKNOWN INDICATION
     Dosage: 4.5,6,9 GM (2.25 GM, 2 IN 1 D), ORAL
     Route: 048
     Dates: start: 20030620, end: 20030101

REACTIONS (1)
  - DEATH [None]
